FAERS Safety Report 24113980 (Version 10)
Quarter: 2025Q4

REPORT INFORMATION
  Report Type: Spontaneous
  Country: CA (occurrence: CA)
  Receive Date: 20240720
  Receipt Date: 20251018
  Transmission Date: 20260117
  Serious: Yes (Other)
  Sender: CELLTRION
  Company Number: CA-PFIZER INC-202400092023

PATIENT

DRUGS (43)
  1. INFLIXIMAB [Suspect]
     Active Substance: INFLIXIMAB
     Indication: Crohn^s disease
     Dosage: 10.0 MG/KG
     Route: 042
  2. INFLIXIMAB [Suspect]
     Active Substance: INFLIXIMAB
     Dosage: 900.0 MILLIGRAM
     Route: 042
  3. INFLIXIMAB [Suspect]
     Active Substance: INFLIXIMAB
     Dosage: 920.0 MILLIGRAM
     Route: 042
  4. INFLIXIMAB [Suspect]
     Active Substance: INFLIXIMAB
     Dosage: 920.0 MILLIGRAM
     Route: 042
  5. INFLIXIMAB [Suspect]
     Active Substance: INFLIXIMAB
     Dosage: 930.0 MILLIGRAM
     Route: 042
  6. INFLIXIMAB [Suspect]
     Active Substance: INFLIXIMAB
     Dosage: 930.0 MILLIGRAM
     Route: 042
  7. INFLIXIMAB [Suspect]
     Active Substance: INFLIXIMAB
     Dosage: 940.0 MILLIGRAM
     Route: 042
  8. INFLIXIMAB [Suspect]
     Active Substance: INFLIXIMAB
     Dosage: 940.0 MILLIGRAM
     Route: 042
  9. INFLIXIMAB [Suspect]
     Active Substance: INFLIXIMAB
     Dosage: 940.0 MILLIGRAM
     Route: 042
  10. INFLIXIMAB [Suspect]
     Active Substance: INFLIXIMAB
     Dosage: 940.0 MILLIGRAM
     Route: 042
  11. INFLIXIMAB [Suspect]
     Active Substance: INFLIXIMAB
     Dosage: 950.0 MILLIGRAM
     Route: 042
  12. INFLIXIMAB [Suspect]
     Active Substance: INFLIXIMAB
     Dosage: 940.0 MILLIGRAM
     Route: 042
  13. INFLIXIMAB [Suspect]
     Active Substance: INFLIXIMAB
     Dosage: 10.0 MG/KG
     Route: 042
  14. INFLIXIMAB [Suspect]
     Active Substance: INFLIXIMAB
     Dosage: 940.0 MILLIGRAM
     Route: 042
  15. INFLIXIMAB [Suspect]
     Active Substance: INFLIXIMAB
     Dosage: 900.0 MILLIGRAM
     Route: 042
  16. INFLIXIMAB [Suspect]
     Active Substance: INFLIXIMAB
     Dosage: 890.0 MILLIGRAM
     Route: 042
  17. INFLIXIMAB [Suspect]
     Active Substance: INFLIXIMAB
     Dosage: 10.0 MG/KG
     Route: 042
  18. INFLIXIMAB [Suspect]
     Active Substance: INFLIXIMAB
     Dosage: 10.0 MG/KG
     Route: 042
  19. INFLECTRA [Suspect]
     Active Substance: INFLIXIMAB-DYYB
     Indication: Crohn^s disease
     Dosage: 10 MG/KG, WEEK 6 THEN EVERY 4 WEEKS FIRST 2 DOSE IN HOSPITAL
     Route: 042
     Dates: start: 20230502
  20. INFLECTRA [Suspect]
     Active Substance: INFLIXIMAB-DYYB
     Dosage: 10 MG/KG, WEEK 6 THEN EVERY 4 WEEKS, FIRST 2 DOSE IN HOSPITAL
     Route: 042
     Dates: start: 20240320
  21. INFLECTRA [Suspect]
     Active Substance: INFLIXIMAB-DYYB
     Dosage: 890 MG (10 MG/KG, WEEK 6 THEN EVERY 4 WEEKS, FIRST 2 DOSE IN HOSPITAL)
     Route: 042
     Dates: start: 20240417
  22. INFLECTRA [Suspect]
     Active Substance: INFLIXIMAB-DYYB
     Dosage: 10 MG/KG (890 MG), AFTER 3 WEEKS AND 6 DAYS (WEEK 6 THEN EVERY 4 WEEKS FIRST 2 DOSE IN HOSPITAL)
     Route: 042
     Dates: start: 20240514
  23. INFLECTRA [Suspect]
     Active Substance: INFLIXIMAB-DYYB
     Dosage: 900 MG, EVERY 4 WEEK
     Route: 042
     Dates: start: 20240611
  24. INFLECTRA [Suspect]
     Active Substance: INFLIXIMAB-DYYB
     Dosage: 920 MG (10 MG/KG, WEEK 6 THEN EVERY 4 WEEKS FIRST 2 DOSE IN HOSPITAL)
     Route: 042
     Dates: start: 20240710
  25. INFLECTRA [Suspect]
     Active Substance: INFLIXIMAB-DYYB
     Dosage: 920 MG (10 MG/KG, WEEK 6 THEN EVERY 4 WEEKS FIRST 2 DOSE IN HOSPITAL)
     Route: 042
     Dates: start: 20240710
  26. INFLECTRA [Suspect]
     Active Substance: INFLIXIMAB-DYYB
     Dosage: 930 MG, (10 MG/KG, WEEK 6 THEN EVERY 4 WEEKS FIRST 2 DOSE IN HOSPITAL)
     Route: 042
     Dates: start: 20240808
  27. INFLECTRA [Suspect]
     Active Substance: INFLIXIMAB-DYYB
     Dosage: 930 MG, (10 MG/KG), WEEK 6 THEN EVERY 4 WEEKS FIRST 2 DOSE IN HOSPITAL)
     Route: 042
     Dates: start: 20240808
  28. INFLECTRA [Suspect]
     Active Substance: INFLIXIMAB-DYYB
     Dosage: 940 MG (10 MG/KG), AFTER 3 WEEKS AND 6 DAYS (EVERY 4 WEEKS)
     Route: 042
     Dates: start: 20240904
  29. INFLECTRA [Suspect]
     Active Substance: INFLIXIMAB-DYYB
     Dosage: 940 MG, AFTER 3 WEEKS AND 5 DAYS (EVERY 4 WEEKS)
     Route: 042
     Dates: start: 20241002
  30. INFLECTRA [Suspect]
     Active Substance: INFLIXIMAB-DYYB
     Dosage: 940 MG, AFTER 3 WEEKS AND 5 DAYS (EVERY 4 WEEKS)
     Route: 042
     Dates: start: 20241028
  31. INFLECTRA [Suspect]
     Active Substance: INFLIXIMAB-DYYB
     Dosage: 940 MG, AFTER 3 WEEKS AND 5 DAYS (EVERY 4 WEEKS)
     Route: 042
     Dates: start: 20241028
  32. INFLECTRA [Suspect]
     Active Substance: INFLIXIMAB-DYYB
     Dosage: 950 MG, (WEEK 6 THEN EVERY 4 WEEKS FIRST 2 DOSE IN HOSPITAL)
     Route: 042
     Dates: start: 20241125
  33. INFLECTRA [Suspect]
     Active Substance: INFLIXIMAB-DYYB
     Dosage: 940 MG, ( 10 MG/KG, WEEK 6 THEN EVERY 4 WEEKSFIRST 2 DOSE IN HOSPITAL)
     Route: 042
     Dates: start: 20241224
  34. INFLECTRA [Suspect]
     Active Substance: INFLIXIMAB-DYYB
     Dosage: 10 MG/KG WEEK 6 THEN EVERY 4 WEEKSFIRST 2 DOSE IN HOSPITAL
     Route: 042
     Dates: start: 20250218
  35. INFLECTRA [Suspect]
     Active Substance: INFLIXIMAB-DYYB
     Dosage: 940 MG, EVERY 4 WEEKS (10 MG/KG WEEK 6 THEN EVERY 4 WEEKSFIRST 2 DOSE IN HOSPITAL)
     Route: 042
     Dates: start: 20250317
  36. INFLECTRA [Suspect]
     Active Substance: INFLIXIMAB-DYYB
     Dosage: 900 MG, EVERY 4 WEEKS (10 MG/KG, WEEK 6 THEN EVERY 4 WEEKSFIRST 2 DOSE IN HOSPITAL)
     Route: 042
     Dates: start: 20250416
  37. INFLECTRA [Suspect]
     Active Substance: INFLIXIMAB-DYYB
     Dosage: 10 MG/KG, WEEK 6 THEN EVERY 4 WEEKSFIRST 2 DOSE IN HOSPITAL
     Route: 042
     Dates: start: 20250512
  38. INFLECTRA [Suspect]
     Active Substance: INFLIXIMAB-DYYB
     Dosage: 930MG AFTER 4 WEEKS
     Route: 042
     Dates: start: 20250609
  39. CANDESARTAN [Concomitant]
     Active Substance: CANDESARTAN
     Dosage: 5 UG (STRENGTH: 5 UG)
  40. PREDNISONE [Concomitant]
     Active Substance: PREDNISONE
     Dosage: 1 DF, TAPERING
     Dates: end: 20230513
  41. SILODOSIN [Concomitant]
     Active Substance: SILODOSIN
     Dosage: 8 UG
  42. TRAZODONE [Concomitant]
     Active Substance: TRAZODONE HYDROCHLORIDE
     Dosage: 100 MG
  43. VENLAFAXINE [Concomitant]
     Active Substance: VENLAFAXINE HYDROCHLORIDE
     Dosage: 150 MG

REACTIONS (7)
  - Ostomy bag placement [Recovered/Resolved]
  - Condition aggravated [Recovered/Resolved]
  - Arthralgia [Recovered/Resolved]
  - Off label use [Recovered/Resolved]
  - Intentional product use issue [Recovered/Resolved]
  - Intentional product use issue [Unknown]
  - Overdose [Unknown]

NARRATIVE: CASE EVENT DATE: 20240101
